FAERS Safety Report 20437906 (Version 1)
Quarter: 2022Q1

REPORT INFORMATION
  Report Type: Spontaneous
  Country: US (occurrence: None)
  Receive Date: 20220204
  Receipt Date: 20220204
  Transmission Date: 20220423
  Serious: Yes (Hospitalization)
  Sender: FDA-Public Use
  Company Number: None

PATIENT
  Sex: Female

DRUGS (2)
  1. VERZENIO [Suspect]
     Active Substance: ABEMACICLIB
     Indication: Breast cancer female
     Dosage: 100MG ONCE DAILY IN THE AM ORAL?
     Route: 048
     Dates: start: 202007
  2. VERZENIO [Suspect]
     Active Substance: ABEMACICLIB
     Indication: Breast cancer female
     Dosage: 50MG ONCE DAILY IN THE PM ORAL?
     Route: 048
     Dates: start: 202007

REACTIONS (4)
  - Dizziness [None]
  - Heart rate increased [None]
  - Thrombosis [None]
  - Contusion [None]
